FAERS Safety Report 9913994 (Version 1)
Quarter: 2014Q1

REPORT INFORMATION
  Report Type: Spontaneous
  Country: US (occurrence: US)
  Receive Date: 20140220
  Receipt Date: 20140220
  Transmission Date: 20141002
  Serious: No
  Sender: FDA-Public Use
  Company Number: US-ASTRAZENECA-2014SE07714

PATIENT
  Age: 75 Year
  Sex: Female
  Weight: 90.7 kg

DRUGS (3)
  1. TENORMIN [Suspect]
     Indication: BLOOD PRESSURE
     Dosage: 50MG SPLIT IN HALF BID
     Route: 048
  2. TYLENOL [Concomitant]
     Dosage: NR NR
  3. INJECTIONS [Concomitant]
     Indication: MACULAR DEGENERATION
     Dosage: NR WEEK

REACTIONS (5)
  - Photopsia [Unknown]
  - Dysarthria [Unknown]
  - Fatigue [Unknown]
  - Intentional drug misuse [Unknown]
  - Off label use [Unknown]
